FAERS Safety Report 16129388 (Version 1)
Quarter: 2019Q1

REPORT INFORMATION
  Report Type: Report from Study
  Country: None (occurrence: BR)
  Receive Date: 20190328
  Receipt Date: 20190328
  Transmission Date: 20190418
  Serious: Yes (Hospitalization)
  Sender: FDA-Public Use
  Company Number: BR-ABBVIE-19K-020-2721958-00

PATIENT
  Sex: Female
  Weight: 53 kg

DRUGS (4)
  1. OMEPRAZOLE. [Concomitant]
     Active Substance: OMEPRAZOLE
     Indication: GASTRIC DISORDER
  2. HUMIRA [Suspect]
     Active Substance: ADALIMUMAB
     Indication: CROHN^S DISEASE
     Route: 058
  3. CITALOPRAM [Concomitant]
     Active Substance: CITALOPRAM HYDROBROMIDE
     Indication: MEMORY IMPAIRMENT
  4. CUTISANOL [Concomitant]
     Indication: RASH

REACTIONS (4)
  - Pyrexia [Recovered/Resolved]
  - Anaemia [Unknown]
  - Diarrhoea [Recovered/Resolved]
  - Product lot number issue [Unknown]

NARRATIVE: CASE EVENT DATE: 2019
